FAERS Safety Report 13025991 (Version 1)
Quarter: 2016Q4

REPORT INFORMATION
  Report Type: Spontaneous
  Country: US (occurrence: US)
  Receive Date: 20161214
  Receipt Date: 20161214
  Transmission Date: 20170207
  Serious: No
  Sender: FDA-Public Use
  Company Number: US-ASTRAZENECA-2016SF23394

PATIENT
  Age: 996 Month
  Sex: Female
  Weight: 52.6 kg

DRUGS (6)
  1. CALCITONIN, SALMON [Concomitant]
     Active Substance: CALCITONIN SALMON
     Route: 065
  2. ASPIRIN. [Concomitant]
     Active Substance: ASPIRIN
     Indication: PAIN
     Dosage: 325.0MG AS REQUIRED
     Route: 048
  3. CRESTOR [Suspect]
     Active Substance: ROSUVASTATIN CALCIUM
     Indication: BLOOD CHOLESTEROL ABNORMAL
     Route: 048
     Dates: start: 201606
  4. MULTIPLE VITAMIN FOR WOMEN [Concomitant]
     Dosage: DAILY
     Route: 048
  5. CALCIUM [Concomitant]
     Active Substance: CALCIUM
     Route: 048
     Dates: start: 2008
  6. CRESTOR [Suspect]
     Active Substance: ROSUVASTATIN CALCIUM
     Indication: BLOOD CHOLESTEROL ABNORMAL
     Route: 048
     Dates: start: 2008

REACTIONS (7)
  - Blood pressure increased [Unknown]
  - Headache [Unknown]
  - Feeling abnormal [Unknown]
  - Dizziness [Unknown]
  - Pain [Unknown]
  - Pruritus [Unknown]
  - Body height decreased [Unknown]

NARRATIVE: CASE EVENT DATE: 201606
